FAERS Safety Report 14711075 (Version 3)
Quarter: 2018Q2

REPORT INFORMATION
  Report Type: Report from Study
  Country: DE (occurrence: DE)
  Receive Date: 20180403
  Receipt Date: 20180516
  Transmission Date: 20180711
  Serious: Yes (Hospitalization)
  Sender: FDA-Public Use
  Company Number: PHHY2017DE052288

PATIENT
  Sex: Female
  Weight: 106 kg

DRUGS (24)
  1. COSENTYX [Suspect]
     Active Substance: SECUKINUMAB
     Indication: ANKYLOSING SPONDYLITIS
     Dosage: 300 MG (PER APPLICATION)
     Route: 065
     Dates: start: 20161128
  2. COSENTYX [Suspect]
     Active Substance: SECUKINUMAB
     Dosage: 300 MG (PER APPLICATION)
     Route: 065
     Dates: start: 20170426
  3. COSENTYX [Suspect]
     Active Substance: SECUKINUMAB
     Dosage: 300 MG (PER APPLICATION)
     Route: 065
     Dates: start: 20170626
  4. VOLTAREN [Concomitant]
     Active Substance: DICLOFENAC SODIUM
     Indication: PAIN
     Dosage: UNK UNK, PRN
     Route: 061
     Dates: start: 20170323
  5. COSENTYX [Suspect]
     Active Substance: SECUKINUMAB
     Dosage: 300 MG (PER APPLICATION)
     Route: 065
     Dates: start: 20161212
  6. COSENTYX [Suspect]
     Active Substance: SECUKINUMAB
     Dosage: 300 MG (PER APPLICATION)
     Route: 065
     Dates: start: 20170126
  7. CELECOXIB. [Concomitant]
     Active Substance: CELECOXIB
     Indication: PSORIATIC ARTHROPATHY
     Dosage: 200 MG, PRN
     Route: 048
     Dates: start: 20161129
  8. COSENTYX [Suspect]
     Active Substance: SECUKINUMAB
     Dosage: 300 MG (PER APPLICATION)
     Route: 065
     Dates: start: 20170226
  9. DICLOFENAC [Concomitant]
     Active Substance: DICLOFENAC
     Indication: PSORIATIC ARTHROPATHY
     Dosage: 75 MG, PRN
     Route: 048
     Dates: start: 20130318
  10. COSENTYX [Suspect]
     Active Substance: SECUKINUMAB
     Dosage: 300 MG (PER APPLICATION)
     Route: 065
     Dates: start: 20161205
  11. COSENTYX [Suspect]
     Active Substance: SECUKINUMAB
     Dosage: 300 MG (PER APPLICATION)
     Route: 065
     Dates: start: 20161219
  12. COSENTYX [Suspect]
     Active Substance: SECUKINUMAB
     Dosage: 300 MG (PER APPLICATION)
     Route: 065
     Dates: start: 20170526
  13. COSENTYX [Suspect]
     Active Substance: SECUKINUMAB
     Dosage: 300 MG (PER APPLICATION)
     Route: 065
     Dates: start: 20170726
  14. COSENTYX [Suspect]
     Active Substance: SECUKINUMAB
     Dosage: 300 MG (PER APPLICATION)
     Route: 065
     Dates: start: 20170926
  15. COSENTYX [Suspect]
     Active Substance: SECUKINUMAB
     Dosage: 300 MG (PER APPLICATION)
     Route: 065
     Dates: start: 20170326
  16. PREDNISOLONE. [Concomitant]
     Active Substance: PREDNISOLONE
     Dosage: 20 MG, QD (1-0-0)
     Route: 048
     Dates: start: 20161212, end: 20161213
  17. RAMIPRIL. [Concomitant]
     Active Substance: RAMIPRIL
     Indication: HYPERTENSION
     Dosage: 5.25 MG, QD
     Route: 048
     Dates: start: 20120709
  18. BISOPROLOL [Concomitant]
     Active Substance: BISOPROLOL
     Indication: HYPERTENSION
     Dosage: 5 MG, QD
     Route: 048
     Dates: start: 20120709
  19. COSENTYX [Suspect]
     Active Substance: SECUKINUMAB
     Dosage: 300 MG (PER APPLICATION)
     Route: 065
     Dates: start: 20161226, end: 20161226
  20. COSENTYX [Suspect]
     Active Substance: SECUKINUMAB
     Dosage: 300 MG (PER APPLICATION)
     Route: 065
     Dates: start: 20170126
  21. COSENTYX [Suspect]
     Active Substance: SECUKINUMAB
     Dosage: 300 MG (PER APPLICATION)
     Route: 065
     Dates: start: 20170126
  22. COSENTYX [Suspect]
     Active Substance: SECUKINUMAB
     Dosage: 300 MG (PER APPLICATION)
     Route: 065
     Dates: start: 20170826
  23. COSENTYX [Suspect]
     Active Substance: SECUKINUMAB
     Dosage: 300 MG (PER APPLICATION)
     Route: 065
     Dates: start: 20171026, end: 20171026
  24. PREDNISOLONE. [Concomitant]
     Active Substance: PREDNISOLONE
     Indication: PSORIATIC ARTHROPATHY
     Dosage: 5 MG (1-0-0-0),TAKING BETWEEN 5 MG AND 10MG WITHOUT CONSULTATION
     Route: 048
     Dates: start: 20160620

REACTIONS (7)
  - Gait disturbance [Recovering/Resolving]
  - Swollen joint count increased [Recovered/Resolved]
  - Hypoaesthesia [Recovering/Resolving]
  - C-reactive protein increased [Recovered/Resolved]
  - Tender joint count increased [Recovered/Resolved]
  - Arthralgia [Recovering/Resolving]
  - Pain in extremity [Recovered/Resolved]

NARRATIVE: CASE EVENT DATE: 20161212
